FAERS Safety Report 9609418 (Version 1)
Quarter: 2013Q4

REPORT INFORMATION
  Report Type: Spontaneous
  Country: US (occurrence: US)
  Receive Date: 20131009
  Receipt Date: 20131009
  Transmission Date: 20140711
  Serious: No
  Sender: FDA-Public Use
  Company Number: US-BAYER-2013-121721

PATIENT
  Sex: Male

DRUGS (3)
  1. ALEVE CAPLET [Suspect]
     Dosage: UNK DF, UNK
  2. ADVIL [Concomitant]
  3. VOLTAREN EMULGEL [Concomitant]

REACTIONS (1)
  - Incorrect drug administration duration [None]
